FAERS Safety Report 8096265-8 (Version None)
Quarter: 2012Q1

REPORT INFORMATION
  Report Type: 
  Country: None (occurrence: None)
  Receive Date: 20120129
  Receipt Date: 20111221
  Transmission Date: 20120608
  Serious: No
  Sender: FDA-Public Use
  Company Number: US-ABBOTT-11P-163-0885925-00

PATIENT
  Age: 63 Year
  Sex: Female

DRUGS (17)
  1. NEXIUM [Concomitant]
     Indication: PRODUCT USED FOR UNKNOWN INDICATION
  2. EPIDRIN [Concomitant]
     Indication: VENTRICULAR EXTRASYSTOLES
  3. CALTRATE + D [Concomitant]
     Indication: PRODUCT USED FOR UNKNOWN INDICATION
     Dosage: 600, 1-2 DAILY
  4. HUMIRA [Suspect]
     Indication: CROHN'S DISEASE
     Dates: start: 20110819
  5. LORAZEPAM [Concomitant]
     Indication: NERVOUSNESS
  6. SERTRALINE HYDROCHLORIDE [Concomitant]
     Indication: PRODUCT USED FOR UNKNOWN INDICATION
     Dosage: DAILY
  7. ASMANEX TWISTHALER [Concomitant]
     Indication: ASTHMA
  8. VITAMIN D [Concomitant]
     Indication: PRODUCT USED FOR UNKNOWN INDICATION
  9. DILTIAZEM CD [Concomitant]
     Indication: HYPERTENSION
  10. CENTRUM CARDIO VITAMIN [Concomitant]
     Indication: PRODUCT USED FOR UNKNOWN INDICATION
     Dosage: DAILY
  11. ATENOLOL [Concomitant]
     Indication: ATRIAL FIBRILLATION
     Dosage: 1-2 PILLS DAILY, 1 DAILY, 2 AS REQUIRED
  12. ATENOLOL [Concomitant]
     Indication: VENTRICULAR EXTRASYSTOLES
  13. VITAMIN B-12 [Concomitant]
     Indication: VITAMIN B12 DEFICIENCY
  14. LOVAZA [Concomitant]
     Indication: PRODUCT USED FOR UNKNOWN INDICATION
     Dosage: 1-2 DAILY
  15. EPIDRIN [Concomitant]
     Indication: ATRIAL FIBRILLATION
  16. CRANBERRY FRUIT [Concomitant]
     Indication: PRODUCT USED FOR UNKNOWN INDICATION
  17. ASCORBIC ACID [Concomitant]
     Indication: PRODUCT USED FOR UNKNOWN INDICATION
     Dosage: DAILY

REACTIONS (1)
  - ALOPECIA [None]
